FAERS Safety Report 7152345-2 (Version None)
Quarter: 2010Q4

REPORT INFORMATION
  Report Type: 
  Country: None (occurrence: None)
  Receive Date: 20101123
  Receipt Date: 20101112
  Transmission Date: 20110411
  Serious: Yes (Hospitalization)
  Sender: FDA-Public Use
  Company Number: GRP10000051

PATIENT
  Age: 71 Year
  Sex: Female
  Weight: 78 kg

DRUGS (4)
  1. ACTONEL [Suspect]
     Indication: OSTEOPOROSIS
     Dosage: 35 MG, 1 /WEEK, ORAL
     Route: 048
     Dates: start: 20080615, end: 20100505
  2. FALITHROM (PHENPROCOUMON) [Suspect]
     Indication: ATRIAL FIBRILLATION
     Dosage: 16.5 MG, 1 /WEEK, ORAL; 15 MG, 1 /WEEK, ORAL
     Route: 048
     Dates: start: 20091203, end: 20100415
  3. FALITHROM (PHENPROCOUMON) [Suspect]
     Indication: ATRIAL FIBRILLATION
     Dosage: 16.5 MG, 1 /WEEK, ORAL; 15 MG, 1 /WEEK, ORAL
     Route: 048
     Dates: start: 20100416, end: 20100504
  4. BISOPROLOL (BISOPROLOL) [Suspect]
     Indication: ATRIAL FIBRILLATION
     Dosage: 2.5 MG, ORAL
     Route: 048
     Dates: start: 20091203

REACTIONS (14)
  - ABDOMINAL DISTENSION [None]
  - ACUTE HEPATIC FAILURE [None]
  - AMMONIA INCREASED [None]
  - DECREASED APPETITE [None]
  - FAECES PALE [None]
  - GENERAL PHYSICAL CONDITION ABNORMAL [None]
  - GLUTAMATE DEHYDROGENASE INCREASED [None]
  - HEART RATE INCREASED [None]
  - HEPATIC NECROSIS [None]
  - HEPATITIS [None]
  - INTERNATIONAL NORMALISED RATIO INCREASED [None]
  - OVERDOSE [None]
  - PROTHROMBIN TIME PROLONGED [None]
  - VOMITING [None]
